FAERS Safety Report 4454116-4 (Version None)
Quarter: 2004Q3

REPORT INFORMATION
  Report Type: 
  Country: None (occurrence: None)
  Receive Date: 20040917
  Receipt Date: 20040917
  Transmission Date: 20050211
  Serious: Yes (Other)
  Sender: FDA-Public Use
  Company Number: None

PATIENT
  Sex: Female
  Weight: 45.3597 kg

DRUGS (2)
  1. BACITRACIN OPHTHALMIC OINTMENT [Suspect]
     Dosage: TOPICAL APPLICATION
     Route: 061
     Dates: start: 20040801
  2. LUNIGAN [Concomitant]

REACTIONS (1)
  - HYPERSENSITIVITY [None]
